FAERS Safety Report 9923630 (Version 1)
Quarter: 2014Q1

REPORT INFORMATION
  Report Type: Spontaneous
  Country: US (occurrence: US)
  Receive Date: 20140225
  Receipt Date: 20140225
  Transmission Date: 20141002
  Serious: No
  Sender: FDA-Public Use
  Company Number: US-AMGEN-USASP2013089499

PATIENT
  Age: 63 Year
  Sex: Female

DRUGS (9)
  1. ENBREL [Suspect]
     Indication: PRODUCT USED FOR UNKNOWN INDICATION
     Dosage: 50 MG, QWK
     Route: 058
  2. NEXIUM                             /01479302/ [Concomitant]
     Dosage: 40 MG, UNK
  3. CELEBREX [Concomitant]
     Dosage: UNK
  4. ATORVASTATIN [Concomitant]
     Dosage: 40 MG, UNK
  5. PRISTIQ [Concomitant]
     Dosage: 50 MG, UNK
  6. BYSTOLIC [Concomitant]
     Dosage: 10 MG, UNK
  7. LEFLUNOMIDE [Concomitant]
     Dosage: 20 MG, UNK
  8. ALPRAZOLAM [Concomitant]
     Dosage: 0.5 MG, UNK
  9. LORTAB                             /00607101/ [Concomitant]
     Dosage: 7.5 UNK, UNK

REACTIONS (1)
  - Injection site mass [Unknown]
